FAERS Safety Report 6219359-8 (Version None)
Quarter: 2009Q2

REPORT INFORMATION
  Report Type: 
  Country: None (occurrence: None)
  Receive Date: 20090609
  Receipt Date: 20090601
  Transmission Date: 20091009
  Serious: Yes (Other)
  Sender: FDA-Public Use
  Company Number: JP-BAYER-200911818BYL

PATIENT
  Age: 56 Year
  Sex: Female
  Weight: 47 kg

DRUGS (14)
  1. FLUDARA [Suspect]
     Indication: FOLLICLE CENTRE LYMPHOMA, FOLLICULAR GRADE I, II, III STAGE IV
     Dosage: AS USED: 30 MG/M2
     Route: 042
     Dates: start: 20081225, end: 20081230
  2. ALKERAN [Concomitant]
     Indication: FOLLICLE CENTRE LYMPHOMA, FOLLICULAR GRADE I, II, III STAGE IV
     Route: 042
     Dates: start: 20081228, end: 20081228
  3. ALKERAN [Concomitant]
     Route: 042
     Dates: start: 20081226, end: 20081226
  4. ALKERAN [Concomitant]
     Route: 042
     Dates: start: 20081230, end: 20081230
  5. CELLCEPT [Concomitant]
     Dosage: TOTAL DAILY DOSE: 2000 MG  UNIT DOSE: 250 MG
     Route: 048
     Dates: start: 20081231, end: 20090108
  6. CELLCEPT [Concomitant]
     Dosage: TOTAL DAILY DOSE: 2000 MG  UNIT DOSE: 250 MG
     Route: 048
     Dates: start: 20090125, end: 20090226
  7. CELLCEPT [Concomitant]
     Dosage: TOTAL DAILY DOSE: 1000 MG  UNIT DOSE: 250 MG
     Route: 048
     Dates: start: 20090227, end: 20090305
  8. PROGRAF [Concomitant]
     Route: 041
     Dates: start: 20081231, end: 20090124
  9. PROGRAF [Concomitant]
     Route: 041
     Dates: start: 20090225, end: 20090312
  10. PROGRAF [Concomitant]
     Route: 041
     Dates: start: 20090125, end: 20090223
  11. RITUXAN [Concomitant]
     Indication: FOLLICLE CENTRE LYMPHOMA, FOLLICULAR GRADE I, II, III STAGE IV
     Route: 041
     Dates: start: 20090414, end: 20090414
  12. RITUXAN [Concomitant]
     Route: 041
     Dates: start: 20090407, end: 20090407
  13. CONCENTRATED RED CELLS [Concomitant]
     Indication: PACKED RED BLOOD CELL TRANSFUSION
     Route: 042
     Dates: start: 20090104, end: 20090411
  14. PLATELETS [Concomitant]
     Indication: PLATELET TRANSFUSION
     Route: 042
     Dates: start: 20090104, end: 20090411

REACTIONS (3)
  - ACUTE GRAFT VERSUS HOST DISEASE IN INTESTINE [None]
  - ACUTE GRAFT VERSUS HOST DISEASE IN SKIN [None]
  - ENCEPHALITIS HERPES [None]
